FAERS Safety Report 21958751 (Version 4)
Quarter: 2025Q2

REPORT INFORMATION
  Report Type: Report from Study
  Country: CA (occurrence: CA)
  Receive Date: 20230206
  Receipt Date: 20250612
  Transmission Date: 20250717
  Serious: Yes (Other)
  Sender: TAKEDA
  Company Number: CA-TAKEDA-2022TUS098092

PATIENT
  Age: 39 Year
  Sex: Male

DRUGS (5)
  1. VEDOLIZUMAB [Suspect]
     Active Substance: VEDOLIZUMAB
     Indication: Crohn^s disease
  2. VEDOLIZUMAB [Suspect]
     Active Substance: VEDOLIZUMAB
  3. VEDOLIZUMAB [Suspect]
     Active Substance: VEDOLIZUMAB
     Dosage: 300 MILLIGRAM, Q4WEEKS
     Dates: start: 20230216
  4. VEDOLIZUMAB [Suspect]
     Active Substance: VEDOLIZUMAB
     Dosage: 300 MILLIGRAM, Q4WEEKS
  5. VEDOLIZUMAB [Suspect]
     Active Substance: VEDOLIZUMAB
     Dosage: 300 MILLIGRAM, Q4WEEKS
     Dates: end: 20250509

REACTIONS (18)
  - Crohn^s disease [Unknown]
  - Haematochezia [Unknown]
  - Clostridium difficile infection [Unknown]
  - Spondylitis [Unknown]
  - Influenza [Unknown]
  - Diarrhoea [Unknown]
  - Prostatitis [Unknown]
  - Off label use [Unknown]
  - Abdominal discomfort [Unknown]
  - Prostatomegaly [Unknown]
  - Faeces discoloured [Unknown]
  - Diarrhoea [Unknown]
  - Perineal pain [Unknown]
  - Malaise [Unknown]
  - Abdominal pain [Unknown]
  - Dyspepsia [Unknown]
  - Constipation [Unknown]
  - Pruritus [Unknown]

NARRATIVE: CASE EVENT DATE: 20230216
